FAERS Safety Report 8245211-2 (Version None)
Quarter: 2012Q1

REPORT INFORMATION
  Report Type: 
  Country: None (occurrence: None)
  Receive Date: 20120329
  Receipt Date: 20120319
  Transmission Date: 20120608
  Serious: Yes (Other)
  Sender: FDA-Public Use
  Company Number: CZ-ABBOTT-12P-217-0916432-00

PATIENT
  Age: 51 Year
  Sex: Female
  Weight: 73 kg

DRUGS (13)
  1. HUMIRA [Suspect]
     Indication: SPONDYLITIS
     Route: 058
     Dates: start: 20100906, end: 20120305
  2. SULFASALAZIN EN [Concomitant]
     Indication: SPONDYLITIS
     Dates: start: 20100603
  3. KETOPROFEN [Concomitant]
     Indication: SPONDYLITIS
     Dates: start: 20100101, end: 20100501
  4. REMOOD [Concomitant]
     Indication: DEPRESSION
     Dates: start: 20090101
  5. MODAFEN [Concomitant]
     Indication: NASOPHARYNGITIS
     Dates: start: 20111010, end: 20111029
  6. SULFASALAZIN EN [Concomitant]
     Dates: start: 20080422, end: 20100602
  7. KETOPROFEN [Concomitant]
     Dates: start: 20100601
  8. TRALGIT [Concomitant]
     Indication: SPONDYLITIS
     Dates: start: 20091201
  9. PARALEN [Concomitant]
     Indication: NASOPHARYNGITIS
     Dates: start: 20111010, end: 20111029
  10. OMEPRAZOLE [Concomitant]
     Indication: DYSPEPSIA
     Dates: start: 20061101
  11. VOLTAREN [Concomitant]
     Indication: SPONDYLITIS
     Dates: start: 20100101
  12. METOPROLOL TARTRATE [Concomitant]
     Indication: HYPERTENSION
     Dates: start: 20090101
  13. PARALEN [Concomitant]
     Indication: VIRAL INFECTION
     Dates: start: 20110107, end: 20110109

REACTIONS (1)
  - FEMALE REPRODUCTIVE NEOPLASM [None]
